FAERS Safety Report 8244894-0 (Version None)
Quarter: 2012Q1

REPORT INFORMATION
  Report Type: 
  Country: None (occurrence: None)
  Receive Date: 20120329
  Receipt Date: 20110811
  Transmission Date: 20120608
  Serious: No
  Sender: FDA-Public Use
  Company Number: US-MYLANLABS-2011S1016958

PATIENT
  Age: 50 Year
  Sex: Female
  Weight: 77.11 kg

DRUGS (9)
  1. ALPRAZOLAM [Suspect]
     Indication: PANIC DISORDER
     Dosage: PRN
     Route: 048
  2. OXYCONTIN [Suspect]
     Indication: OROPHARYNGEAL PAIN
     Route: 048
     Dates: start: 20110401
  3. PREMARIN [Concomitant]
     Indication: HORMONE REPLACEMENT THERAPY
     Route: 048
  4. CYCLOBENZAPRINE HCL [Concomitant]
     Indication: MUSCLE SPASMS
     Route: 048
     Dates: start: 20100301
  5. NEXIUM [Concomitant]
     Indication: GASTROOESOPHAGEAL REFLUX DISEASE
     Route: 048
  6. PHENERGAN HCL [Concomitant]
     Indication: NAUSEA
     Dates: start: 20110501
  7. OXYCODONE HCL [Suspect]
     Indication: OROPHARYNGEAL PAIN
     Route: 048
     Dates: start: 20110401
  8. FENTANYL-100 [Suspect]
     Indication: OROPHARYNGEAL PAIN
     Dosage: Q3D
     Route: 062
     Dates: start: 20110601
  9. PRISTIQ [Concomitant]
     Indication: PANIC ATTACK
     Route: 048
     Dates: start: 20110201

REACTIONS (5)
  - DYSARTHRIA [None]
  - DYSPNOEA [None]
  - BLOOD PRESSURE INCREASED [None]
  - PRURITUS [None]
  - PARAESTHESIA [None]
